FAERS Safety Report 10228055 (Version 1)
Quarter: 2014Q2

REPORT INFORMATION
  Report Type: Spontaneous
  Country: US (occurrence: None)
  Receive Date: 20140606
  Receipt Date: 20140606
  Transmission Date: 20141212
  Serious: Yes (Disabling)
  Sender: FDA-Public Use
  Company Number: FK201402073

PATIENT
  Age: 59 Year
  Sex: Female

DRUGS (2)
  1. LEVOFLOXACIN [Suspect]
     Indication: INFECTION
     Dates: start: 200912
  2. PREGABALIN [Suspect]
     Indication: PARAESTHESIA

REACTIONS (7)
  - Amnesia [None]
  - Depression [None]
  - Flushing [None]
  - Asthenia [None]
  - Paraesthesia [None]
  - Intervertebral disc protrusion [None]
  - Cyst [None]
